FAERS Safety Report 6250734-1 (Version None)
Quarter: 2009Q2

REPORT INFORMATION
  Report Type: 
  Country: None (occurrence: None)
  Receive Date: 20090630
  Receipt Date: 20090302
  Transmission Date: 20091009
  Serious: No
  Sender: FDA-Public Use
  Company Number: US-ABBOTT-08P-163-0470496-00

PATIENT
  Sex: Female
  Weight: 77.18 kg

DRUGS (6)
  1. ZEMPLAR [Suspect]
     Indication: RENAL DISORDER
     Route: 048
     Dates: start: 20080601
  2. LIPITOR [Concomitant]
     Indication: BLOOD CHOLESTEROL INCREASED
     Route: 048
  3. DIGOXIN [Concomitant]
     Indication: PALPITATIONS
     Route: 048
     Dates: start: 20071201
  4. BENAZEDRIL [Concomitant]
     Indication: HYPERTENSION
     Route: 048
  5. MAGNESIUM OXIDE [Concomitant]
     Indication: MINERAL SUPPLEMENTATION
     Route: 048
  6. FUROSEMIDE INTENSOL [Concomitant]
     Indication: DIURETIC THERAPY
     Route: 048

REACTIONS (1)
  - EPISTAXIS [None]
